FAERS Safety Report 13824124 (Version 2)
Quarter: 2017Q3

REPORT INFORMATION
  Report Type: Spontaneous
  Country: PR (occurrence: PR)
  Receive Date: 20170802
  Receipt Date: 20170809
  Transmission Date: 20171127
  Serious: Yes (Other)
  Sender: FDA-Public Use
  Company Number: PR-BAYER-2017-140858

PATIENT
  Age: 56 Year
  Sex: Female

DRUGS (1)
  1. AVELOX [Suspect]
     Active Substance: MOXIFLOXACIN HYDROCHLORIDE
     Indication: ABDOMINAL PAIN UPPER
     Dosage: UNK
     Route: 048
     Dates: start: 2015

REACTIONS (6)
  - Uveitis [Not Recovered/Not Resolved]
  - Retinal detachment [Not Recovered/Not Resolved]
  - Retinal disorder [Not Recovered/Not Resolved]
  - Blindness [Not Recovered/Not Resolved]
  - Vision blurred [Not Recovered/Not Resolved]
  - Mydriasis [Not Recovered/Not Resolved]

NARRATIVE: CASE EVENT DATE: 2015
